FAERS Safety Report 7300861-2 (Version None)
Quarter: 2011Q1

REPORT INFORMATION
  Report Type: 
  Country: None (occurrence: None)
  Receive Date: 20110103
  Receipt Date: 20100929
  Transmission Date: 20110831
  Serious: Yes (Other)
  Sender: FDA-Public Use
  Company Number: US-005254

PATIENT
  Age: 29 Year
  Sex: Male

DRUGS (3)
  1. BENADRYL [Concomitant]
  2. PREDNISONE TAB [Concomitant]
  3. MULTIHANCE [Suspect]
     Indication: NUCLEAR MAGNETIC RESONANCE IMAGING BRAIN
     Dosage: 20ML ONCE INTRAVENOUS
     Route: 042
     Dates: start: 20100729, end: 20100729

REACTIONS (3)
  - PRURITUS [None]
  - DYSPNOEA [None]
  - URTICARIA [None]
